FAERS Safety Report 13560643 (Version 2)
Quarter: 2017Q3

REPORT INFORMATION
  Report Type: Report from Study
  Country: None (occurrence: RO)
  Receive Date: 20170518
  Receipt Date: 20170801
  Transmission Date: 20171127
  Serious: Yes (Hospitalization, Other)
  Sender: FDA-Public Use
  Company Number: RO-ABBVIE-17K-135-1979184-00

PATIENT
  Age: 66 Year
  Sex: Female
  Weight: 91 kg

DRUGS (1)
  1. HUMIRA [Suspect]
     Active Substance: ADALIMUMAB
     Indication: HEPATIC CIRRHOSIS
     Route: 058
     Dates: start: 20101215, end: 20170415

REACTIONS (3)
  - Hepatic cirrhosis [Recovering/Resolving]
  - Drug-induced liver injury [Unknown]
  - Cholestasis [Recovering/Resolving]

NARRATIVE: CASE EVENT DATE: 2017
